FAERS Safety Report 23064234 (Version 1)
Quarter: 2023Q4

REPORT INFORMATION
  Report Type: Spontaneous
  Country: US (occurrence: US)
  Receive Date: 20231013
  Receipt Date: 20231013
  Transmission Date: 20240109
  Serious: No
  Sender: FDA-Public Use
  Company Number: US-ALLERGAN-2304645US

PATIENT
  Sex: Female

DRUGS (1)
  1. LINACLOTIDE [Suspect]
     Active Substance: LINACLOTIDE
     Indication: Product used for unknown indication
     Dosage: FORM: UNKNOWN
     Route: 048

REACTIONS (3)
  - Intentional product misuse [Unknown]
  - Diarrhoea [Unknown]
  - Disease recurrence [Unknown]
